FAERS Safety Report 23689450 (Version 1)
Quarter: 2024Q1

REPORT INFORMATION
  Report Type: Spontaneous
  Country: GB (occurrence: GB)
  Receive Date: 20240331
  Receipt Date: 20240331
  Transmission Date: 20240410
  Serious: Yes (Hospitalization, Other)
  Sender: FDA-Public Use
  Company Number: None

PATIENT
  Age: 19 Year
  Sex: Male

DRUGS (1)
  1. OMEPRAZOLE [Suspect]
     Active Substance: OMEPRAZOLE

REACTIONS (4)
  - Dyspnoea [Recovered/Resolved]
  - Feeling hot [Unknown]
  - Rash [Unknown]
  - Hypersensitivity [None]

NARRATIVE: CASE EVENT DATE: 20231117
